FAERS Safety Report 16865140 (Version 1)
Quarter: 2019Q3

REPORT INFORMATION
  Report Type: Report from Study
  Country: JP (occurrence: JP)
  Receive Date: 20190930
  Receipt Date: 20190930
  Transmission Date: 20191005
  Serious: Yes (Death)
  Sender: FDA-Public Use
  Company Number: JP-AMGEN-JPNNI2019030411

PATIENT
  Age: 20 Year
  Sex: Male

DRUGS (3)
  1. DEXAMETHASONE. [Suspect]
     Active Substance: DEXAMETHASONE
     Indication: PYREXIA
     Dosage: 13.2 MILLIGRAM
     Route: 065
     Dates: start: 20190221
  2. BLINATUMOMAB [Suspect]
     Active Substance: BLINATUMOMAB
     Dosage: 28 MICROGRAM, QD
     Route: 042
     Dates: start: 20190228
  3. BLINATUMOMAB [Suspect]
     Active Substance: BLINATUMOMAB
     Indication: ACUTE LYMPHOCYTIC LEUKAEMIA
     Dosage: 9 MICROGRAM, QD
     Route: 041
     Dates: start: 20190221

REACTIONS (5)
  - Graft versus host disease [Fatal]
  - Pyrexia [Recovered/Resolved]
  - Tremor [Recovered/Resolved]
  - Neutrophil count decreased [Recovered/Resolved]
  - Organising pneumonia [Fatal]

NARRATIVE: CASE EVENT DATE: 20190222
